FAERS Safety Report 6997041-7 (Version None)
Quarter: 2010Q3

REPORT INFORMATION
  Report Type: 
  Country: None (occurrence: None)
  Receive Date: 20100918
  Receipt Date: 20090901
  Transmission Date: 20110219
  Serious: No
  Sender: FDA-Public Use
  Company Number: US-WYE-H10801709

PATIENT
  Age: 89 Year
  Sex: Female

DRUGS (2)
  1. PRISTIQ [Suspect]
     Route: 048
     Dates: start: 20090831
  2. LIPITOR [Concomitant]

REACTIONS (2)
  - NAUSEA [None]
  - VOMITING [None]
